FAERS Safety Report 8106331-6 (Version None)
Quarter: 2012Q1

REPORT INFORMATION
  Report Type: 
  Country: None (occurrence: None)
  Receive Date: 20120202
  Receipt Date: 20120126
  Transmission Date: 20120608
  Serious: Yes (Hospitalization)
  Sender: FDA-Public Use
  Company Number: JP-CELGENEUS-087-21880-11090552

PATIENT
  Sex: Female

DRUGS (28)
  1. DEXAMETHASONE ACETATE [Suspect]
     Dosage: 40 MILLIGRAM
     Route: 048
     Dates: start: 20100906, end: 20100925
  2. FUROSEMIDE [Concomitant]
     Indication: PROPHYLAXIS
     Dosage: 10 MILLIGRAM
     Route: 048
     Dates: start: 20100813, end: 20101020
  3. ACETAMINOPHEN [Concomitant]
     Dosage: 600 MILLIGRAM
     Route: 048
     Dates: start: 20100813, end: 20101020
  4. EBRANTIL [Concomitant]
     Indication: PROPHYLAXIS
     Dosage: 30 MILLIGRAM
     Route: 048
  5. REVLIMID [Suspect]
     Indication: MULTIPLE MYELOMA
     Dosage: 25 MILLIGRAM
     Route: 048
     Dates: start: 20100809, end: 20100829
  6. REVLIMID [Suspect]
     Dosage: 15 MILLIGRAM
     Route: 048
     Dates: start: 20110524, end: 20110607
  7. DEXAMETHASONE ACETATE [Suspect]
     Indication: MULTIPLE MYELOMA
     Dosage: 40 MILLIGRAM
     Route: 048
     Dates: start: 20100809, end: 20100828
  8. LASIX [Concomitant]
     Indication: PROPHYLAXIS
     Dosage: 10 MILLIGRAM
     Route: 048
     Dates: end: 20100812
  9. CODEINE PHOSPHATE [Concomitant]
     Dosage: 60 MILLIGRAM
     Route: 048
     Dates: start: 20100813, end: 20101020
  10. REVLIMID [Suspect]
     Dosage: 15 MILLIGRAM
     Route: 048
     Dates: start: 20110412, end: 20110502
  11. PURSENNID [Concomitant]
     Dosage: 12 MILLIGRAM
     Route: 048
     Dates: end: 20101020
  12. TEGRETOL [Concomitant]
     Dosage: 200 MILLIGRAM
     Route: 048
     Dates: end: 20101020
  13. REVLIMID [Suspect]
     Dosage: 15 MILLIGRAM
     Route: 048
     Dates: start: 20110317, end: 20110406
  14. UBRETID [Concomitant]
     Indication: PROPHYLAXIS
     Dosage: 5 MILLIGRAM
     Route: 048
  15. REVLIMID [Suspect]
     Dosage: 15 MILLIGRAM
     Route: 048
     Dates: start: 20110510, end: 20110516
  16. DEXAMETHASONE ACETATE [Suspect]
     Dosage: 40 MILLIGRAM
     Route: 048
     Dates: start: 20110218, end: 20110221
  17. METHYCOBAL [Concomitant]
     Dosage: 1500 MICROGRAM
     Route: 048
     Dates: start: 20110120
  18. ASPIRIN [Concomitant]
     Indication: PROPHYLAXIS
     Dosage: 100 MILLIGRAM
     Route: 048
  19. PELTAZON [Concomitant]
     Dosage: 25 MILLIGRAM
     Route: 048
     Dates: start: 20110607
  20. REVLIMID [Suspect]
     Dosage: 25 MILLIGRAM
     Route: 048
     Dates: start: 20101004, end: 20101020
  21. REVLIMID [Suspect]
     Dosage: 15 MILLIGRAM
     Route: 048
     Dates: start: 20110218, end: 20110309
  22. MAGMITT [Concomitant]
     Dosage: 990 MILLIGRAM
     Route: 048
     Dates: start: 20101029
  23. REVLIMID [Suspect]
     Dosage: 25 MILLIGRAM
     Route: 048
     Dates: start: 20100906, end: 20100926
  24. REVLIMID [Suspect]
     Dosage: 15 MILLIGRAM
     Route: 048
     Dates: start: 20110614, end: 20110703
  25. DEXAMETHASONE ACETATE [Suspect]
     Dosage: 40 MILLIGRAM
     Route: 048
     Dates: start: 20101004, end: 20101015
  26. MAGNESIUM OXIDE [Concomitant]
     Dosage: 1 GRAM
     Route: 048
     Dates: end: 20101020
  27. ALOSENN [Concomitant]
     Dosage: .5 GRAM
     Route: 048
     Dates: start: 20100813, end: 20101020
  28. ACETAMINOPHEN [Concomitant]
     Dosage: 400 MILLIGRAM
     Route: 048
     Dates: start: 20110106

REACTIONS (5)
  - URINARY TRACT INFECTION [None]
  - HYPOKALAEMIA [None]
  - DEHYDRATION [None]
  - INSOMNIA [None]
  - NEUROGENIC BLADDER [None]
